FAERS Safety Report 16517486 (Version 2)
Quarter: 2019Q3

REPORT INFORMATION
  Report Type: Spontaneous
  Country: US (occurrence: US)
  Receive Date: 20190702
  Receipt Date: 20190702
  Transmission Date: 20191004
  Serious: Yes (Other)
  Sender: FDA-Public Use
  Company Number: US-ENDO PHARMACEUTICALS INC-2019-105790

PATIENT
  Age: 7 Year
  Sex: Female

DRUGS (2)
  1. SUPPRELIN LA [Suspect]
     Active Substance: HISTRELIN ACETATE
     Dosage: UNK UNKNOWN, UNKNOWN
     Route: 065
     Dates: start: 20190614
  2. SUPPRELIN LA [Suspect]
     Active Substance: HISTRELIN ACETATE
     Indication: PRECOCIOUS PUBERTY
     Dosage: UNK UNKNOWN, ONCE A YEAR
     Route: 065

REACTIONS (2)
  - Corneal perforation [Unknown]
  - Corneal operation [Unknown]

NARRATIVE: CASE EVENT DATE: 201905
